FAERS Safety Report 7356613-0 (Version None)
Quarter: 2011Q1

REPORT INFORMATION
  Report Type: 
  Country: None (occurrence: None)
  Receive Date: 20110316
  Receipt Date: 20110303
  Transmission Date: 20110831
  Serious: Yes (Disabling, Other)
  Sender: FDA-Public Use
  Company Number: PHHY2010AU52341

PATIENT
  Sex: Female

DRUGS (6)
  1. PULMICORT [Concomitant]
     Indication: ASTHMA
     Dosage: 400 MG, UNK
     Dates: start: 20060907
  2. SODIUM HYPOCHLORITE [Concomitant]
  3. ACTONEL [Concomitant]
     Indication: OSTEOPOROSIS
     Dosage: 35 MG, UNK
     Route: 048
     Dates: start: 20090312
  4. TEMAZE [Concomitant]
     Indication: INSOMNIA
     Dosage: 10 MG, UNK
  5. ACLASTA [Suspect]
     Indication: OSTEOPOROSIS
     Dosage: 5 MG/100ML
     Route: 042
     Dates: start: 20090325
  6. AIROMIN [Concomitant]
     Indication: ASTHMA
     Dosage: 100 MG, UNK

REACTIONS (6)
  - MYALGIA [None]
  - BACK PAIN [None]
  - JAW DISORDER [None]
  - BREAST SWELLING [None]
  - TOOTH DISORDER [None]
  - ARTHRALGIA [None]
